FAERS Safety Report 23314858 (Version 3)
Quarter: 2024Q1

REPORT INFORMATION
  Report Type: Spontaneous
  Country: GB (occurrence: GB)
  Receive Date: 20231219
  Receipt Date: 20240209
  Transmission Date: 20240410
  Serious: Yes (Death, Other)
  Sender: FDA-Public Use
  Company Number: None

PATIENT
  Age: 6 Month
  Sex: Male
  Weight: 9 kg

DRUGS (2)
  1. CLINDAMYCIN [Suspect]
     Active Substance: CLINDAMYCIN
     Indication: Streptococcal sepsis
     Dosage: 940 MILLIGRAM (6 DIFFERENT NURSES ADMINISTERED 940MG 5 TIMES OVER 30 HOURS (EVERY 6 HOURS))
     Route: 042
     Dates: start: 20230305
  2. CLINDAMYCIN [Suspect]
     Active Substance: CLINDAMYCIN
     Indication: Empyema

REACTIONS (3)
  - Streptococcal sepsis [Fatal]
  - Empyema [Fatal]
  - Accidental overdose [Fatal]
